FAERS Safety Report 18778318 (Version 1)
Quarter: 2021Q1

REPORT INFORMATION
  Report Type: Spontaneous
  Country: US (occurrence: US)
  Receive Date: 20210123
  Receipt Date: 20210123
  Transmission Date: 20210419
  Serious: No
  Sender: FDA-Public Use
  Company Number: US-TEVA-2021-US-1870826

PATIENT
  Age: 70 Year
  Sex: Male

DRUGS (2)
  1. TADALAFIL. [Suspect]
     Active Substance: TADALAFIL
     Indication: ERECTILE DYSFUNCTION
     Route: 065
  2. TADALAFIL. [Suspect]
     Active Substance: TADALAFIL
     Indication: PROSTATIC DISORDER

REACTIONS (1)
  - Hypertension [Recovering/Resolving]
